FAERS Safety Report 26180707 (Version 1)
Quarter: 2025Q4

REPORT INFORMATION
  Report Type: Spontaneous
  Country: US (occurrence: US)
  Receive Date: 20251219
  Receipt Date: 20251219
  Transmission Date: 20260118
  Serious: Yes (Other)
  Sender: ALEXION PHARMACEUTICALS
  Company Number: US-ASTRAZENECA-202512GLO015079US

PATIENT
  Age: 75 Year
  Sex: Male

DRUGS (3)
  1. TEZEPELUMAB [Suspect]
     Active Substance: TEZEPELUMAB
     Indication: Asthma
     Route: 065
  2. TEZEPELUMAB [Suspect]
     Active Substance: TEZEPELUMAB
  3. THEOPHYLLINE [Concomitant]
     Active Substance: THEOPHYLLINE

REACTIONS (5)
  - Chronic respiratory failure [Unknown]
  - Drug ineffective [Unknown]
  - Condition aggravated [Unknown]
  - Dyspnoea [Unknown]
  - Respiratory acidosis [Unknown]
